FAERS Safety Report 20621196 (Version 1)
Quarter: 2022Q1

REPORT INFORMATION
  Report Type: Spontaneous
  Country: US (occurrence: None)
  Receive Date: 20220322
  Receipt Date: 20220322
  Transmission Date: 20220423
  Serious: Yes (Death, Hospitalization)
  Sender: FDA-Public Use
  Company Number: None

PATIENT
  Sex: Female
  Weight: 119 kg

DRUGS (2)
  1. CISPLATIN [Suspect]
     Active Substance: CISPLATIN
  2. ALIMTA [Concomitant]
     Active Substance: PEMETREXED DISODIUM

REACTIONS (23)
  - Vomiting [None]
  - Abdominal pain [None]
  - Hypoxia [None]
  - Cardiomegaly [None]
  - Pulmonary congestion [None]
  - Pneumonia [None]
  - Anaemia [None]
  - Blood creatinine increased [None]
  - Aspartate aminotransferase increased [None]
  - Alanine aminotransferase increased [None]
  - Troponin increased [None]
  - Thrombocytopenia [None]
  - Fibrin D dimer increased [None]
  - Hepatomegaly [None]
  - Effusion [None]
  - Acute myocardial infarction [None]
  - Acute kidney injury [None]
  - Acute respiratory failure [None]
  - Non-small cell lung cancer [None]
  - Pulmonary oedema [None]
  - Lupus-like syndrome [None]
  - Malignant neoplasm progression [None]
  - Multiple organ dysfunction syndrome [None]

NARRATIVE: CASE EVENT DATE: 20220227
